FAERS Safety Report 13536667 (Version 1)
Quarter: 2017Q2

REPORT INFORMATION
  Report Type: Spontaneous
  Country: US (occurrence: US)
  Receive Date: 20170511
  Receipt Date: 20170511
  Transmission Date: 20170830
  Serious: Yes (Other)
  Sender: FDA-Public Use
  Company Number: US-UCBSA-2017018187

PATIENT
  Age: 30 Year
  Sex: Male

DRUGS (1)
  1. LEVOCETIRIZINE HYDROCHLORIDE [Suspect]
     Active Substance: LEVOCETIRIZINE HYDROCHLORIDE
     Indication: SEASONAL ALLERGY
     Dosage: 5 MG, ONCE DAILY (QD)
     Dates: start: 20170501, end: 20170502

REACTIONS (5)
  - Drug ineffective [Unknown]
  - Feeling drunk [Unknown]
  - Haemorrhage [Unknown]
  - Sunburn [Unknown]
  - Somnolence [Unknown]

NARRATIVE: CASE EVENT DATE: 201705
